FAERS Safety Report 6568970-3 (Version None)
Quarter: 2010Q1

REPORT INFORMATION
  Report Type: 
  Country: None (occurrence: None)
  Receive Date: 20100201
  Receipt Date: 20100201
  Transmission Date: 20100710
  Serious: Yes (Other)
  Sender: FDA-Public Use
  Company Number: None

PATIENT
  Sex: Female

DRUGS (2)
  1. CYMBALTA [Suspect]
     Indication: ANXIETY
     Dosage: 60 MG 1 DAILY CAPSULE
     Dates: start: 20090701, end: 20090901
  2. CYMBALTA [Suspect]
     Indication: POST HERPETIC NEURALGIA
     Dosage: 60 MG 1 DAILY CAPSULE
     Dates: start: 20090701, end: 20090901

REACTIONS (1)
  - SUPRAVENTRICULAR EXTRASYSTOLES [None]
